FAERS Safety Report 12503907 (Version 1)
Quarter: 2016Q2

REPORT INFORMATION
  Report Type: Spontaneous
  Country: None (occurrence: None)
  Receive Date: 20160627
  Receipt Date: 20160627
  Transmission Date: 20160815
  Serious: Yes (Other)
  Sender: FDA-Public Use
  Company Number: None

PATIENT
  Age: 46 Year
  Sex: Female

DRUGS (1)
  1. HYDROCODONE/APAP, 7.5-325MG / 5ML PHARMACEUTICAL ASSOCIATION [Suspect]
     Active Substance: ACETAMINOPHEN\HYDROCODONE BITARTRATE
     Dosage: 15 ML Q3-4H ORAL
     Route: 048
     Dates: start: 20160622, end: 20160624

REACTIONS (5)
  - Product quality issue [None]
  - Overdose [None]
  - Presyncope [None]
  - Respiratory depression [None]
  - Dizziness [None]

NARRATIVE: CASE EVENT DATE: 20160622
